FAERS Safety Report 6919853-8 (Version None)
Quarter: 2010Q3

REPORT INFORMATION
  Report Type: 
  Country: None (occurrence: None)
  Receive Date: 20100810
  Receipt Date: 20100810
  Transmission Date: 20110219
  Serious: No
  Sender: FDA-Public Use
  Company Number: None

PATIENT
  Sex: Male
  Weight: 77.1115 kg

DRUGS (1)
  1. LEVAQUIN [Suspect]
     Dosage: 750 ONCE PER DAY PO
     Route: 048
     Dates: start: 20060916, end: 20060918

REACTIONS (5)
  - BURNING SENSATION [None]
  - HYPOAESTHESIA [None]
  - HYPOKINESIA [None]
  - OFF LABEL USE [None]
  - PARAESTHESIA [None]
